FAERS Safety Report 15371299 (Version 2)
Quarter: 2018Q3

REPORT INFORMATION
  Report Type: Spontaneous
  Country: JP (occurrence: JP)
  Receive Date: 20180911
  Receipt Date: 20180913
  Transmission Date: 20181010
  Serious: Yes (Other)
  Sender: FDA-Public Use
  Company Number: JP-PFIZER INC-2018360914

PATIENT
  Age: 55 Year
  Sex: Male

DRUGS (4)
  1. LANSOPRAZOLE. [Concomitant]
     Active Substance: LANSOPRAZOLE
     Dosage: UNK
  2. THYRADIN [Concomitant]
     Active Substance: LEVOTHYROXINE
     Dosage: UNK
  3. INLYTA [Suspect]
     Active Substance: AXITINIB
     Dosage: 10 MG, DAILY
     Route: 048
     Dates: start: 201702
  4. LIPACREON [Concomitant]
     Active Substance: PANCRELIPASE
     Dosage: UNK

REACTIONS (7)
  - Malaise [Unknown]
  - Asthenia [Unknown]
  - Lipids increased [Unknown]
  - Oedema [Recovered/Resolved]
  - Dysgeusia [Unknown]
  - Renal impairment [Unknown]
  - Blood pressure increased [Unknown]
